FAERS Safety Report 25596699 (Version 1)
Quarter: 2025Q3

REPORT INFORMATION
  Report Type: Spontaneous
  Country: BR (occurrence: BR)
  Receive Date: 20250723
  Receipt Date: 20250723
  Transmission Date: 20251020
  Serious: Yes (Death, Life-Threatening, Hospitalization, Other)
  Sender: STRIDES
  Company Number: BR-STRIDES ARCOLAB LIMITED-2025SP008757

PATIENT
  Age: 12 Year
  Sex: Female

DRUGS (4)
  1. AMANTADINE [Suspect]
     Active Substance: AMANTADINE
     Indication: Antiviral treatment
     Dates: start: 20220413
  2. SAPROPTERIN [Suspect]
     Active Substance: SAPROPTERIN
     Indication: Antiviral treatment
     Dates: start: 20220413
  3. Immunoglobulin equine anti-rabies [Concomitant]
     Indication: Rabies
     Route: 065
     Dates: start: 20220406
  4. Immunoglobulin equine anti-rabies [Concomitant]
     Route: 065
     Dates: start: 20220424

REACTIONS (2)
  - Condition aggravated [Fatal]
  - Off label use [Unknown]
